FAERS Safety Report 8539183-0 (Version None)
Quarter: 2012Q3

REPORT INFORMATION
  Report Type: 
  Country: None (occurrence: None)
  Receive Date: 20120726
  Receipt Date: 20120719
  Transmission Date: 20120928
  Serious: Yes (Disabling, Other)
  Sender: FDA-Public Use
  Company Number: GB-NOVOPROD-356478

PATIENT
  Age: 44 Year
  Sex: Male
  Weight: 141 kg

DRUGS (13)
  1. DICLOFENAC SODIUM [Concomitant]
     Dosage: 75 MG, BID
     Dates: start: 20110906
  2. VICTOZA [Suspect]
     Indication: DIABETES MELLITUS
     Dosage: 1.2 MG, UNK
     Route: 058
     Dates: start: 20120525, end: 20120621
  3. BENDROFLUMETHIAZIDE [Concomitant]
     Dosage: 2.5 MG, QD
     Dates: start: 20070816
  4. DOXAZOSIN MESYLATE [Concomitant]
     Dosage: 4 MG, QD
     Dates: start: 20080208
  5. MIRTAZAPINE [Concomitant]
     Dosage: 45 MG, QD
     Dates: start: 20120413
  6. SITAGLIPTIN METFORMIN [Concomitant]
     Dosage: 1 DF, BID
     Dates: start: 20120308
  7. FELODIPINE [Concomitant]
     Dosage: 10 MG, QD
     Dates: start: 20070612
  8. MORPHINE SULFATE [Concomitant]
     Indication: PAIN
     Dosage: 10 MG, UNK WHEN REQUIRED
     Route: 048
     Dates: start: 20110930
  9. TRAMADOL HCL [Concomitant]
     Dosage: 100 MG, UNK WHEN REQUIRED
     Dates: start: 20120224
  10. CO-DYDRAMOL [Concomitant]
     Dosage: UNK
     Dates: start: 20070612
  11. MIRTAZAPINE [Concomitant]
     Dosage: 30 MG, QD
     Dates: start: 20080117
  12. LISINOPRIL [Concomitant]
     Dosage: 20 MG, BID
     Dates: start: 20070612
  13. SALBUTAMOL                         /00139502/ [Concomitant]
     Dosage: 200 A?G, UNK WHEN REQUIRED
     Route: 055
     Dates: start: 20110804

REACTIONS (2)
  - ABDOMINAL PAIN [None]
  - DIARRHOEA [None]
